FAERS Safety Report 9607788 (Version 1)
Quarter: 2013Q4

REPORT INFORMATION
  Report Type: Spontaneous
  Country: US (occurrence: None)
  Receive Date: 20131008
  Receipt Date: 20131008
  Transmission Date: 20140711
  Serious: Yes (Other)
  Sender: FDA-Public Use
  Company Number: None

PATIENT
  Sex: Female

DRUGS (1)
  1. ENBREL [Suspect]
     Indication: RHEUMATOID ARTHRITIS
     Dosage: 50 MG SUB Q
     Dates: start: 201309

REACTIONS (4)
  - Sinusitis [None]
  - Headache [None]
  - Dyspnoea [None]
  - Chest discomfort [None]
